FAERS Safety Report 5905427-4 (Version None)
Quarter: 2008Q4

REPORT INFORMATION
  Report Type: 
  Country: None (occurrence: None)
  Receive Date: 20081001
  Receipt Date: 20081001
  Transmission Date: 20090506
  Serious: Yes (Other)
  Sender: FDA-Public Use
  Company Number: None

PATIENT
  Sex: Female
  Weight: 149.687 kg

DRUGS (1)
  1. NEOSPORIN [Suspect]
     Indication: SKIN LESION
     Dosage: GRAIN OF RICE SIZE 3 TIMES IN 24HRS.
     Dates: start: 20080826, end: 20080827

REACTIONS (3)
  - DOCUMENTED HYPERSENSITIVITY TO ADMINISTERED DRUG [None]
  - MEDICATION ERROR [None]
  - RASH [None]
